FAERS Safety Report 9131710 (Version 1)
Quarter: 2013Q1

REPORT INFORMATION
  Report Type: Report from Study
  Country: US (occurrence: US)
  Receive Date: 20130301
  Receipt Date: 20130301
  Transmission Date: 20140127
  Serious: No
  Sender: FDA-Public Use
  Company Number: US-MYLANLABS-2012S1011795

PATIENT
  Age: 31 Year
  Sex: Female
  Weight: 70.76 kg

DRUGS (5)
  1. AMNESTEEM CAPSULES [Suspect]
     Indication: ACNE CYSTIC
     Dates: start: 20120410, end: 20120427
  2. CLARAVIS [Suspect]
     Indication: ACNE CYSTIC
     Route: 048
     Dates: start: 20120309, end: 20120409
  3. GEODON [Concomitant]
  4. VIIBRYD [Concomitant]
  5. MV [Concomitant]

REACTIONS (1)
  - Depression [Not Recovered/Not Resolved]
